FAERS Safety Report 6119544-X (Version None)
Quarter: 2009Q1

REPORT INFORMATION
  Report Type: 
  Country: None (occurrence: None)
  Receive Date: 20090316
  Receipt Date: 20090306
  Transmission Date: 20090719
  Serious: Yes (Other)
  Sender: FDA-Public Use
  Company Number: B0541382A

PATIENT
  Sex: Female
  Weight: 60 kg

DRUGS (1)
  1. VENTOLIN [Suspect]
     Indication: ASTHMA
     Route: 048
     Dates: start: 20081002

REACTIONS (3)
  - ANXIETY [None]
  - PALPITATIONS [None]
  - TREMOR [None]
